FAERS Safety Report 16074359 (Version 2)
Quarter: 2019Q2

REPORT INFORMATION
  Report Type: Spontaneous
  Country: US (occurrence: US)
  Receive Date: 20190314
  Receipt Date: 20190612
  Transmission Date: 20190711
  Serious: No
  Sender: FDA-Public Use
  Company Number: US-TEVA-2019-US-1013649

PATIENT
  Age: 72 Year
  Sex: Female

DRUGS (1)
  1. TOLTERODINE, 4 MG [Suspect]
     Active Substance: TOLTERODINE
     Dates: start: 20150206

REACTIONS (2)
  - Product substitution issue [Unknown]
  - Therapeutic product effect decreased [Unknown]
